FAERS Safety Report 24530069 (Version 2)
Quarter: 2024Q4

REPORT INFORMATION
  Report Type: Spontaneous
  Country: US (occurrence: US)
  Receive Date: 20241021
  Receipt Date: 20241217
  Transmission Date: 20250115
  Serious: Yes (Hospitalization)
  Sender: PFIZER
  Company Number: US-PFIZER INC-PV202400087098

PATIENT
  Age: 55 Year
  Sex: Female

DRUGS (3)
  1. TUKYSA [Suspect]
     Active Substance: TUCATINIB
     Indication: Breast cancer female
     Dosage: ONE TABLET OF THE TUKYSA 50MG TWICE A DAY WITH TWO TABLETS OF THE TUKYSA 150MG TWICE A DAY.
     Route: 048
  2. TUKYSA [Suspect]
     Active Substance: TUCATINIB
     Dosage: ONE TABLET OF THE TUKYSA 50MG TWICE A DAY WITH TWO TABLETS OF THE TUKYSA 150MG TWICE A DAY.
     Route: 048
  3. TUKYSA [Suspect]
     Active Substance: TUCATINIB
     Dosage: TAKE TWO 150MG TABLETS TWICE DAILY

REACTIONS (4)
  - Rheumatoid arthritis [Unknown]
  - Chest pain [Unknown]
  - Inflammation [Unknown]
  - Off label use [Unknown]
